FAERS Safety Report 9122565 (Version 1)
Quarter: 2013Q1

REPORT INFORMATION
  Report Type: Spontaneous
  Country: US (occurrence: None)
  Receive Date: 20130131
  Receipt Date: 20130131
  Transmission Date: 20140127
  Serious: Yes (Other)
  Sender: FDA-Public Use
  Company Number: JPI-P-029279

PATIENT
  Age: 42 Year
  Sex: Male
  Weight: 66.23 kg

DRUGS (4)
  1. XYREM (500 MILLIGRAM/MILLILITERS, SOLUTION) (SODIUM OXYBATE) [Suspect]
     Indication: NARCOLEPSY
     Dosage: 4.5 GM, (2.25 MG, 2 IN 1 D), ORAL
     Route: 048
     Dates: start: 201109
  2. XYREM (500 MILLIGRAM/MILLILITERS, SOLUTION) (SODIUM OXYBATE) [Suspect]
     Indication: SOMNOLENCE
     Dosage: 4.5 GM, (2.25 MG, 2 IN 1 D), ORAL
     Route: 048
     Dates: start: 201109
  3. METHYLPHENIDATE HYDROCHLORIDE [Concomitant]
  4. MULTIVITAMIN [Concomitant]

REACTIONS (1)
  - Meniscus injury [None]
